FAERS Safety Report 15727112 (Version 1)
Quarter: 2018Q4

REPORT INFORMATION
  Report Type: Spontaneous
  Country: ES (occurrence: ES)
  Receive Date: 20181217
  Receipt Date: 20181217
  Transmission Date: 20190205
  Serious: Yes (Death, Other)
  Sender: FDA-Public Use
  Company Number: ES-AMGEN-ESPSP2018177258

PATIENT
  Age: 71 Year
  Sex: Male

DRUGS (8)
  1. CAFINITRINA [CAFFEINE CITRATE\NITROGLYCERIN\PHENOBARBITAL] [Concomitant]
     Active Substance: CAFFEINE CITRATE\NITROGLYCERIN\PHENOBARBITAL
     Dosage: UNK UNK, QD
     Route: 060
     Dates: end: 20181129
  2. OMEPRAZOL CINFAMED [Concomitant]
     Dosage: 20 MG, QD
     Route: 048
     Dates: end: 20181129
  3. METFORMINA SANDOZ [Concomitant]
     Active Substance: METFORMIN HYDROCHLORIDE
     Indication: TYPE 2 DIABETES MELLITUS
     Dosage: 850 MG, Q8H
     Route: 048
     Dates: end: 20181129
  4. ADIRO [Concomitant]
     Active Substance: ASPIRIN
     Dosage: 100 MG, QD
     Route: 048
     Dates: end: 20181129
  5. RAMIPRIL NORMON [Concomitant]
     Dosage: 10 MG, QD
     Route: 048
     Dates: end: 20181129
  6. BISOPROLOL NORMON [Concomitant]
     Dosage: 2.5 MG, QD
     Route: 048
     Dates: end: 20181129
  7. REPATHA [Suspect]
     Active Substance: EVOLOCUMAB
     Indication: HYPERCHOLESTEROLAEMIA
     Dosage: 140 MG, Q2WK
     Route: 058
     Dates: start: 20180612, end: 20181129
  8. EZETROL [Concomitant]
     Active Substance: EZETIMIBE
     Indication: HYPERCHOLESTEROLAEMIA
     Dosage: 10 MG, QD
     Route: 048
     Dates: end: 20181129

REACTIONS (1)
  - Sudden death [Fatal]

NARRATIVE: CASE EVENT DATE: 20181129
